FAERS Safety Report 4296349-6 (Version None)
Quarter: 2004Q1

REPORT INFORMATION
  Report Type: 
  Country: None (occurrence: None)
  Receive Date: 20040217
  Receipt Date: 20040205
  Transmission Date: 20041129
  Serious: Yes (Hospitalization)
  Sender: FDA-Public Use
  Company Number: PHRM2004FR00750

PATIENT
  Age: 89 Year
  Sex: Female
  Weight: 40 kg

DRUGS (4)
  1. EXELON [Suspect]
     Indication: DEMENTIA ALZHEIMER'S TYPE
     Dosage: UNK, UNK
     Route: 048
  2. CHRONADALATE [Suspect]
     Indication: HYPERTENSION
     Dosage: 30 MG/DAY
     Route: 048
  3. TRIATEC [Suspect]
     Indication: HYPERTENSION
     Dosage: 5 MG/DAY
     Route: 048
  4. LASILIX [Suspect]
     Indication: HYPERTENSION
     Dosage: 20 MG, QOD
     Route: 048
     Dates: start: 20030123

REACTIONS (4)
  - CREATININE RENAL CLEARANCE DECREASED [None]
  - FALL [None]
  - HUMERUS FRACTURE [None]
  - LOSS OF CONSCIOUSNESS [None]
